FAERS Safety Report 4844545-9 (Version None)
Quarter: 2005Q4

REPORT INFORMATION
  Report Type: 
  Country: None (occurrence: None)
  Receive Date: 20051129
  Receipt Date: 20051114
  Transmission Date: 20060501
  Serious: Yes (Other)
  Sender: FDA-Public Use
  Company Number: GXKR2005BR01994

PATIENT
  Age: 5 Year
  Sex: Female
  Weight: 26 kg

DRUGS (1)
  1. AMOXICILLIN + CLAVULANATE POTASSIUM (NGX) (AMOXICILLIN, CLAVULANATE) S [Suspect]
     Indication: PHARYNGITIS
     Dosage: 10 ML TID, ORAL
     Route: 048
     Dates: start: 20051108, end: 20051111

REACTIONS (7)
  - DIFFICULTY IN WALKING [None]
  - DYSURIA [None]
  - OEDEMA PERIPHERAL [None]
  - PAIN IN EXTREMITY [None]
  - PRURITUS [None]
  - URINE OUTPUT DECREASED [None]
  - VOMITING [None]
